FAERS Safety Report 5765058-6 (Version None)
Quarter: 2008Q2

REPORT INFORMATION
  Report Type: 
  Country: None (occurrence: None)
  Receive Date: 20080606
  Receipt Date: 20080606
  Transmission Date: 20081010
  Serious: No
  Sender: FDA-Public Use
  Company Number: None

PATIENT
  Sex: Female

DRUGS (1)
  1. DIGOXIN - 250 MCG (0.25 MG) CO. BERTEK [Suspect]
     Indication: ARRHYTHMIA PROPHYLAXIS
     Dosage: 250 MCG 1 X DAILY
     Dates: end: 20080505

REACTIONS (7)
  - BEDRIDDEN [None]
  - COUGH [None]
  - DIZZINESS [None]
  - HEADACHE [None]
  - OEDEMA PERIPHERAL [None]
  - PHARMACEUTICAL PRODUCT COMPLAINT [None]
  - STOMACH DISCOMFORT [None]
